FAERS Safety Report 8029815-8 (Version None)
Quarter: 2012Q1

REPORT INFORMATION
  Report Type: 
  Country: None (occurrence: None)
  Receive Date: 20120109
  Receipt Date: 20120104
  Transmission Date: 20120608
  Serious: Yes (Hospitalization, Other)
  Sender: FDA-Public Use
  Company Number: US-PFIZER INC-2012003427

PATIENT
  Sex: Male
  Weight: 77.098 kg

DRUGS (5)
  1. ALBUTEROL [Concomitant]
     Indication: ASTHMA
     Dosage: UNK
  2. SUTENT [Suspect]
     Indication: RENAL CELL CARCINOMA
     Dosage: 50 MG, DAILY
     Dates: start: 20111120, end: 20111217
  3. ALDACTONE [Concomitant]
     Indication: ASTHMA
     Dosage: UNK
  4. ALBUTEROL SULFATE [Concomitant]
     Indication: ASTHMA
     Dosage: UNK
  5. ACCOLATE [Concomitant]
     Indication: ASTHMA
     Dosage: 20 MG, DAILY

REACTIONS (5)
  - OXYGEN SATURATION DECREASED [None]
  - ASTHMA [None]
  - BLOOD CREATININE INCREASED [None]
  - WHITE BLOOD CELL COUNT DECREASED [None]
  - PLATELET COUNT DECREASED [None]
